FAERS Safety Report 7465665-9 (Version None)
Quarter: 2011Q2

REPORT INFORMATION
  Report Type: 
  Country: None (occurrence: None)
  Receive Date: 20110509
  Receipt Date: 20110429
  Transmission Date: 20111010
  Serious: Yes (Other)
  Sender: FDA-Public Use
  Company Number: A0926292A

PATIENT
  Age: 49 Year
  Sex: Female

DRUGS (1)
  1. LAMICTAL [Suspect]
     Indication: EPILEPSY

REACTIONS (3)
  - DRUG INEFFECTIVE [None]
  - ADVERSE DRUG REACTION [None]
  - GRAND MAL CONVULSION [None]
